FAERS Safety Report 4759313-6 (Version None)
Quarter: 2005Q3

REPORT INFORMATION
  Report Type: 
  Country: None (occurrence: None)
  Receive Date: 20050831
  Receipt Date: 20050826
  Transmission Date: 20060218
  Serious: Yes (Other)
  Sender: FDA-Public Use
  Company Number: 215371

PATIENT
  Age: 67 Year
  Sex: Male
  Weight: 74 kg

DRUGS (4)
  1. MABTHERA (RITUXIMAB) CONC FOR SOLUTION FOR INFUSION [Suspect]
     Indication: NON-HODGKIN'S LYMPHOMA
     Dosage: SINGLE, INTRAVENOUS
     Route: 042
     Dates: start: 20041101, end: 20041101
  2. MABTHERA (RITUXIMAB) CONC FOR SOLUTION FOR INFUSION [Suspect]
     Indication: NON-HODGKIN'S LYMPHOMA
     Dosage: SINGLE, INTRAVENOUS
     Route: 042
     Dates: start: 20041202, end: 20041202
  3. ZEVALIN [Suspect]
     Indication: NON-HODGKIN'S LYMPHOMA
     Dosage: SINGLE, INTRAVENOUS
     Route: 042
     Dates: start: 20041202, end: 20041202
  4. YTRACIS (YTTRIUM-90) [Suspect]
     Indication: NON-HODGKIN'S LYMPHOMA
     Dosage: 1.26 BQ, SINGLE, INTRAVENOUS
     Route: 042
     Dates: start: 20041202, end: 20041202

REACTIONS (2)
  - LYMPHADENOPATHY [None]
  - OEDEMA [None]
